FAERS Safety Report 12525429 (Version 1)
Quarter: 2016Q3

REPORT INFORMATION
  Report Type: Spontaneous
  Country: FR (occurrence: FR)
  Receive Date: 20160704
  Receipt Date: 20160704
  Transmission Date: 20161109
  Serious: Yes (Life-Threatening, Other)
  Sender: FDA-Public Use
  Company Number: FR-ASTRAZENECA-2016SE71850

PATIENT
  Age: 7034 Day
  Sex: Female

DRUGS (4)
  1. ZOPICLONE [Concomitant]
     Active Substance: ZOPICLONE
  2. TERCIAN [Concomitant]
     Active Substance: CYAMEMAZINE
  3. XEROQUEL [Suspect]
     Active Substance: QUETIAPINE FUMARATE
     Dosage: 18.0G ONCE/SINGLE ADMINISTRATION
     Route: 048
     Dates: start: 20160413, end: 20160413
  4. VALIUM [Concomitant]
     Active Substance: DIAZEPAM

REACTIONS (3)
  - Coma [Recovered/Resolved]
  - Suicidal ideation [Unknown]
  - Intentional overdose [Unknown]

NARRATIVE: CASE EVENT DATE: 20160413
